FAERS Safety Report 5042336-X (Version None)
Quarter: 2006Q3

REPORT INFORMATION
  Report Type: 
  Country: None (occurrence: None)
  Receive Date: 20060705
  Receipt Date: 20060602
  Transmission Date: 20061208
  Serious: Yes (Life-Threatening)
  Sender: FDA-Public Use
  Company Number: PHNU2006DE02204

PATIENT
  Age: 47 Year
  Sex: Male

DRUGS (5)
  1. TEGRETOL [Suspect]
     Dosage: 400 MG, BID
     Route: 048
     Dates: start: 19910101
  2. DOGMATIL FORTE [Concomitant]
     Route: 048
     Dates: start: 19910101
  3. TEGRETOL [Suspect]
     Indication: CONVULSION
     Dosage: 900 MG/DAY
     Dates: start: 19870114, end: 19870203
  4. TEGRETOL [Suspect]
     Dosage: 1800 MG/DAY
     Dates: start: 19870204, end: 19870206
  5. TEGRETOL [Suspect]
     Dosage: 1200 MG/DAY
     Dates: start: 19900701, end: 19901006

REACTIONS (5)
  - AGGRESSION [None]
  - CARDIAC ARREST [None]
  - COMA [None]
  - DRUG INTOLERANCE [None]
  - EPILEPSY [None]
